FAERS Safety Report 4509435-X (Version None)
Quarter: 2004Q4

REPORT INFORMATION
  Report Type: 
  Country: None (occurrence: None)
  Receive Date: 20041025
  Receipt Date: 20040709
  Transmission Date: 20050328
  Serious: Yes (Hospitalization)
  Sender: FDA-Public Use
  Company Number: US-JNJFOC-20040702660

PATIENT
  Age: 58 Year
  Sex: Female

DRUGS (13)
  1. INFLIXIMAB (INFLIXIMAB, RECOMBINANT) LYOPHILIZED POWDER [Suspect]
     Indication: RHEUMATOID ARTHRITIS
     Dosage: 800 MG, 1 IN 1 MONTH, INTRAVENOUS
     Route: 042
     Dates: start: 20010320
  2. TYLENOL W/ CODEINE NO. 3 [Concomitant]
  3. FOLIC ACID [Concomitant]
  4. ATENOLOL [Concomitant]
  5. METHOTREXATE [Concomitant]
  6. CLONAZEPAM [Concomitant]
  7. QUINIDINE (QUINIDINE) [Concomitant]
  8. CALCIUM (CALCIUM) [Concomitant]
  9. PREDNISONE [Concomitant]
  10. LEXAPRO [Concomitant]
  11. DEXTROSTAT (DEXAFETAMINE SULFATE) [Concomitant]
  12. CYCLOBENZAPRINE (CYCLOBENZAPRINE) [Concomitant]
  13. FUROSEMIDE [Concomitant]

REACTIONS (3)
  - FALL [None]
  - PLEURAL EFFUSION [None]
  - PLEURISY [None]
